FAERS Safety Report 20819766 (Version 10)
Quarter: 2024Q4

REPORT INFORMATION
  Report Type: Report from Study
  Country: DE (occurrence: DE)
  Receive Date: 20220512
  Receipt Date: 20241029
  Transmission Date: 20250115
  Serious: Yes (Hospitalization, Other)
  Sender: ROCHE
  Company Number: DE-ROCHE-2249912

PATIENT
  Age: 49 Year
  Sex: Female

DRUGS (15)
  1. OCREVUS [Suspect]
     Active Substance: OCRELIZUMAB
     Indication: Primary progressive multiple sclerosis
     Route: 042
     Dates: start: 20180615
  2. OCREVUS [Suspect]
     Active Substance: OCRELIZUMAB
     Route: 042
     Dates: start: 202010
  3. OCREVUS [Suspect]
     Active Substance: OCRELIZUMAB
     Dosage: 5TH CYCLE
     Route: 042
     Dates: start: 20191127
  4. OCREVUS [Suspect]
     Active Substance: OCRELIZUMAB
     Route: 042
     Dates: start: 20200504
  5. OCREVUS [Suspect]
     Active Substance: OCRELIZUMAB
     Route: 042
  6. BACLOFEN [Suspect]
     Active Substance: BACLOFEN
     Indication: Product used for unknown indication
     Route: 065
  7. METOPROLOL [Concomitant]
     Active Substance: METOPROLOL
  8. DALFAMPRIDINE [Concomitant]
     Active Substance: DALFAMPRIDINE
  9. LEVOTHYROXINE SODIUM [Concomitant]
     Active Substance: LEVOTHYROXINE SODIUM
  10. LEVOTHYROXINE SODIUM [Concomitant]
     Active Substance: LEVOTHYROXINE SODIUM
  11. NABIXIMOLS [Concomitant]
     Active Substance: NABIXIMOLS
     Dosage: FREQUENCY TEXT:AS REQUIRED
  12. BOTOX [Concomitant]
     Active Substance: ONABOTULINUMTOXINA
     Indication: Bladder dysfunction
  13. IBUPROFEN [Concomitant]
     Active Substance: IBUPROFEN
  14. CALCIUM [Concomitant]
     Active Substance: CALCIUM
     Dosage: TOGETHER WITH VITAMIN D
  15. NOVALGIN (METAMIZOLE SODIUM) [Concomitant]
     Active Substance: METAMIZOLE SODIUM

REACTIONS (25)
  - Therapeutic product effect decreased [Recovered/Resolved]
  - Fall [Unknown]
  - Femoral neck fracture [Recovering/Resolving]
  - Gait disturbance [Not Recovered/Not Resolved]
  - Urinary retention [Recovered/Resolved]
  - Cystitis noninfective [Recovered/Resolved]
  - Tachycardia [Not Recovered/Not Resolved]
  - Limb asymmetry [Recovering/Resolving]
  - Atrial fibrillation [Recovered/Resolved]
  - Reversible ischaemic neurological deficit [Not Recovered/Not Resolved]
  - Temperature intolerance [Recovered/Resolved]
  - Muscle spasticity [Not Recovered/Not Resolved]
  - Tooth fracture [Recovered/Resolved]
  - Arthralgia [Recovered/Resolved]
  - Musculoskeletal chest pain [Recovered/Resolved]
  - Bone contusion [Recovered/Resolved]
  - Nocturia [Recovered/Resolved]
  - Escherichia urinary tract infection [Recovered/Resolved]
  - Uhthoff^s phenomenon [Not Recovered/Not Resolved]
  - Constipation [Not Recovered/Not Resolved]
  - Multiple sclerosis [Unknown]
  - Asthenia [Not Recovered/Not Resolved]
  - Blood pressure increased [Recovered/Resolved]
  - Muscular weakness [Recovered/Resolved]
  - Concussion [Recovered/Resolved]

NARRATIVE: CASE EVENT DATE: 20180801
